FAERS Safety Report 22976558 (Version 3)
Quarter: 2023Q4

REPORT INFORMATION
  Report Type: Spontaneous
  Country: HK (occurrence: HK)
  Receive Date: 20230925
  Receipt Date: 20231002
  Transmission Date: 20240109
  Serious: Yes (Other)
  Sender: FDA-Public Use
  Company Number: HK-BAYER-2023A133692

PATIENT
  Age: 67 Year
  Sex: Female

DRUGS (19)
  1. EYLEA [Suspect]
     Active Substance: AFLIBERCEPT
     Indication: Polypoidal choroidal vasculopathy
     Dosage: 2 MG, SOLUTION FOR INJECTION, 40 MG/ML
     Route: 031
     Dates: start: 201510, end: 201512
  2. EYLEA [Suspect]
     Active Substance: AFLIBERCEPT
     Dosage: 2 MG, SOLUTION FOR INJECTION, 40 MG/ML
     Route: 031
     Dates: start: 201607, end: 201609
  3. EYLEA [Suspect]
     Active Substance: AFLIBERCEPT
     Dosage: 2 MG, SOLUTION FOR INJECTION, 40 MG/ML
     Route: 031
     Dates: start: 201709, end: 201711
  4. EYLEA [Suspect]
     Active Substance: AFLIBERCEPT
     Dosage: 2 MG, SOLUTION FOR INJECTION, 40 MG/ML
     Route: 031
     Dates: start: 201805, end: 201807
  5. EYLEA [Suspect]
     Active Substance: AFLIBERCEPT
     Dosage: 2 MG, ONCE, SOLUTION FOR INJECTION, 40 MG/ML
     Route: 031
     Dates: start: 201810, end: 201810
  6. EYLEA [Suspect]
     Active Substance: AFLIBERCEPT
     Dosage: 2 MG, ONCE, SOLUTION FOR INJECTION, 40 MG/ML
     Route: 031
     Dates: start: 201901, end: 201901
  7. EYLEA [Suspect]
     Active Substance: AFLIBERCEPT
     Dosage: 2 MG, ONCE, SOLUTION FOR INJECTION, 40 MG/ML
     Route: 031
     Dates: start: 201903, end: 201903
  8. EYLEA [Suspect]
     Active Substance: AFLIBERCEPT
     Dosage: 2 MG, ONCE, SOLUTION FOR INJECTION, 40 MG/ML
     Route: 031
     Dates: start: 201905, end: 201905
  9. EYLEA [Suspect]
     Active Substance: AFLIBERCEPT
     Dosage: 2 MG, ONCE, SOLUTION FOR INJECTION, 40 MG/ML
     Route: 031
     Dates: start: 201906, end: 201906
  10. EYLEA [Suspect]
     Active Substance: AFLIBERCEPT
     Dosage: 2 MG, ONCE, SOLUTION FOR INJECTION, 40 MG/ML
     Route: 031
     Dates: start: 201909, end: 201909
  11. EYLEA [Suspect]
     Active Substance: AFLIBERCEPT
     Dosage: 2 MG, ONCE, SOLUTION FOR INJECTION, 40 MG/ML
     Route: 031
     Dates: start: 201911, end: 201911
  12. EYLEA [Suspect]
     Active Substance: AFLIBERCEPT
     Dosage: 2 MG, ONCE, SOLUTION FOR INJECTION, 40 MG/ML
     Route: 031
     Dates: start: 202001, end: 202001
  13. EYLEA [Suspect]
     Active Substance: AFLIBERCEPT
     Dosage: 2 MG, ONCE, SOLUTION FOR INJECTION, 40 MG/ML
     Route: 031
     Dates: start: 202002, end: 202002
  14. EYLEA [Suspect]
     Active Substance: AFLIBERCEPT
     Dosage: 2 MG, ONCE, SOLUTION FOR INJECTION, 40 MG/ML
     Route: 031
     Dates: start: 202004, end: 202004
  15. EYLEA [Suspect]
     Active Substance: AFLIBERCEPT
     Dosage: 2 MG, ONCE, SOLUTION FOR INJECTION, 40 MG/ML
     Route: 031
     Dates: start: 202005, end: 202005
  16. EYLEA [Suspect]
     Active Substance: AFLIBERCEPT
     Dosage: 2 MG, ONCE, SOLUTION FOR INJECTION, 40 MG/ML
     Route: 031
     Dates: start: 202007, end: 202007
  17. EYLEA [Suspect]
     Active Substance: AFLIBERCEPT
     Dosage: 2 MG, ONCE, SOLUTION FOR INJECTION, 40 MG/ML
     Route: 031
     Dates: start: 202008, end: 202008
  18. VISUDYNE [Concomitant]
     Active Substance: VERTEPORFIN
     Indication: Photodynamic therapy
     Dosage: FOLLOWED BY LASER LIGHT ADMINISTRATION (689?3 NM) ON THE NEOVASCULAR LESION IN RETINA
     Route: 042
     Dates: start: 20160930, end: 20160930
  19. VISUDYNE [Concomitant]
     Active Substance: VERTEPORFIN
     Dosage: FOLLOWED BY LASER LIGHT ADMINISTRATION (689?3 NM) ON THE NEOVASCULAR LESION IN RETINA
     Route: 042
     Dates: start: 20190417, end: 20190417

REACTIONS (15)
  - Polypoidal choroidal vasculopathy [Recovered/Resolved]
  - Subretinal fluid [Recovered/Resolved]
  - Retinal haemorrhage [Recovered/Resolved]
  - Polypoidal choroidal vasculopathy [Recovered/Resolved]
  - Subretinal fluid [Recovered/Resolved]
  - Retinal haemorrhage [Recovered/Resolved]
  - Polypoidal choroidal vasculopathy [Recovered/Resolved]
  - Subretinal fluid [Recovered/Resolved]
  - Retinal haemorrhage [Recovered/Resolved]
  - Polypoidal choroidal vasculopathy [Recovered/Resolved]
  - Subretinal fluid [Recovered/Resolved]
  - Detachment of retinal pigment epithelium [Recovered/Resolved]
  - Detachment of retinal pigment epithelium [Recovered/Resolved]
  - Off label use [Unknown]
  - Drug effective for unapproved indication [Unknown]

NARRATIVE: CASE EVENT DATE: 20151001
